FAERS Safety Report 4333662-8 (Version None)
Quarter: 2004Q2

REPORT INFORMATION
  Report Type: 
  Country: None (occurrence: None)
  Receive Date: 20040405
  Receipt Date: 20040405
  Transmission Date: 20050107
  Serious: Yes (Life-Threatening, Hospitalization)
  Sender: FDA-Public Use
  Company Number: None

PATIENT
  Age: 35 Year
  Sex: Female

DRUGS (1)
  1. TEQUIN [Suspect]
     Dosage: PO X 1 DOSE
     Route: 048
     Dates: start: 20031001

REACTIONS (2)
  - ANAPHYLACTIC REACTION [None]
  - HYPOAESTHESIA [None]
